FAERS Safety Report 16674862 (Version 1)
Quarter: 2019Q3

REPORT INFORMATION
  Report Type: Spontaneous
  Country: US (occurrence: US)
  Receive Date: 20190806
  Receipt Date: 20190806
  Transmission Date: 20191004
  Serious: No
  Sender: FDA-Public Use
  Company Number: US-SA-2019SA204949

PATIENT
  Age: 73 Year
  Sex: Female

DRUGS (1)
  1. DUPILUMAB [Suspect]
     Active Substance: DUPILUMAB
     Indication: ASTHMA
     Dosage: 300 MG, QOW

REACTIONS (4)
  - Therapeutic product effect delayed [Unknown]
  - Eye movement disorder [Not Recovered/Not Resolved]
  - Eye swelling [Unknown]
  - Product use issue [Unknown]

NARRATIVE: CASE EVENT DATE: 201907
